FAERS Safety Report 5714123-8 (Version None)
Quarter: 2008Q2

REPORT INFORMATION
  Report Type: 
  Country: None (occurrence: None)
  Receive Date: 20080422
  Receipt Date: 20080422
  Transmission Date: 20081010
  Serious: No
  Sender: FDA-Public Use
  Company Number: None

PATIENT
  Age: 5 Day
  Sex: Female
  Weight: 0.68 kg

DRUGS (1)
  1. NEOPROFEN [Suspect]
     Indication: PATENT DUCTUS ARTERIOSUS
     Dosage: 7 MG X1, 3.5 MGX2 Q24H IV BOLUS
     Route: 040
     Dates: start: 20080419, end: 20080421

REACTIONS (1)
  - INTRAVENTRICULAR HAEMORRHAGE [None]
